FAERS Safety Report 5100839-3 (Version None)
Quarter: 2006Q3

REPORT INFORMATION
  Report Type: 
  Country: None (occurrence: None)
  Receive Date: 20060911
  Receipt Date: 20060831
  Transmission Date: 20061208
  Serious: Yes (Other)
  Sender: FDA-Public Use
  Company Number: US-JNJFOC-20060900285

PATIENT
  Sex: Female
  Weight: 63.5 kg

DRUGS (12)
  1. REMICADE [Suspect]
     Indication: RHEUMATOID ARTHRITIS
     Route: 042
  2. AMBIEN [Concomitant]
  3. ASPIRIN [Concomitant]
  4. ELAVIL [Concomitant]
  5. FOLIC ACID [Concomitant]
  6. MAGNESIUM [Concomitant]
  7. RELAFEN [Concomitant]
  8. TIMOLOL MALEATE [Concomitant]
  9. VISTARIL [Concomitant]
  10. PROTONIX [Concomitant]
  11. ZOCOR [Concomitant]
  12. HUMIRA [Concomitant]

REACTIONS (1)
  - LUNG NEOPLASM MALIGNANT [None]
